FAERS Safety Report 11437536 (Version 1)
Quarter: 2015Q3

REPORT INFORMATION
  Report Type: Spontaneous
  Country: US (occurrence: US)
  Receive Date: 20150821
  Receipt Date: 20150821
  Transmission Date: 20151125
  Serious: No
  Sender: FDA-Public Use
  Company Number: US-ELI_LILLY_AND_COMPANY-US200705003537

PATIENT
  Age: 59 Year
  Sex: Female

DRUGS (2)
  1. MOTRIN [Concomitant]
     Active Substance: IBUPROFEN
     Dosage: UNK, AS NEEDED
  2. CYMBALTA [Suspect]
     Active Substance: DULOXETINE HYDROCHLORIDE
     Indication: PAIN
     Dates: start: 2007

REACTIONS (2)
  - Constipation [Unknown]
  - Abdominal distension [Unknown]

NARRATIVE: CASE EVENT DATE: 2007
